FAERS Safety Report 5221234-2 (Version None)
Quarter: 2007Q1

REPORT INFORMATION
  Report Type: 
  Country: None (occurrence: None)
  Receive Date: 20070126
  Receipt Date: 20070115
  Transmission Date: 20070707
  Serious: Yes (Death)
  Sender: FDA-Public Use
  Company Number: LV-PFIZER INC-2006155966

PATIENT
  Sex: Male

DRUGS (12)
  1. SUTENT [Suspect]
     Indication: METASTATIC RENAL CELL CARCINOMA
     Route: 048
     Dates: start: 20061102, end: 20061201
  2. OXYGEN [Concomitant]
     Route: 055
     Dates: start: 20061207
  3. FENOTEROL W/IPRATROPIUM [Concomitant]
     Route: 055
  4. DIHYDROCODEINE BITARTRATE INJ [Concomitant]
     Route: 042
  5. SIBAZON [Concomitant]
     Route: 030
  6. PREDNISOLONE [Concomitant]
     Route: 042
  7. MEDROL [Concomitant]
     Route: 048
  8. TORSEMIDE [Concomitant]
     Route: 048
  9. DIACARB [Concomitant]
     Route: 048
  10. OMEPRAZOLE [Concomitant]
     Route: 042
  11. GELOFUSINE [Concomitant]
     Route: 042
  12. GLUCOSE [Concomitant]
     Route: 042

REACTIONS (3)
  - CARDIOPULMONARY FAILURE [None]
  - DISEASE PROGRESSION [None]
  - POISONING [None]
